FAERS Safety Report 7693172-7 (Version None)
Quarter: 2011Q3

REPORT INFORMATION
  Report Type: 
  Country: None (occurrence: None)
  Receive Date: 20110815
  Receipt Date: 20110803
  Transmission Date: 20111222
  Serious: Yes (Hospitalization)
  Sender: FDA-Public Use
  Company Number: 1000022649

PATIENT
  Age: 75 Year
  Sex: Female

DRUGS (5)
  1. PREDNISOLONE [Suspect]
     Dosage: ORAL
     Route: 048
     Dates: end: 20091017
  2. PANTOPRAZOLE [Suspect]
     Dosage: ORAL
     Route: 048
     Dates: end: 20091017
  3. EFFEXOR [Suspect]
     Dosage: 75 MG (75 MG, 1 IN 1 D), ORAL
     Route: 048
     Dates: end: 20101017
  4. NEBIVOLOL HCL [Suspect]
     Dosage: 2.5 MG (2.5 MG, 1 IN 1 D), ORAL
     Route: 048
     Dates: end: 20091017
  5. PROZAC [Suspect]
     Dosage: 20 MG (20 MG, 1 IN 1 D), ORAL
     Route: 048
     Dates: end: 20091017

REACTIONS (2)
  - ACCOMMODATION DISORDER [None]
  - DEPRESSION [None]
